FAERS Safety Report 7668610-6 (Version None)
Quarter: 2011Q3

REPORT INFORMATION
  Report Type: 
  Country: None (occurrence: None)
  Receive Date: 20110808
  Receipt Date: 20110808
  Transmission Date: 20111222
  Serious: Yes (Life-Threatening)
  Sender: FDA-Public Use
  Company Number: None

PATIENT
  Age: 80 Year
  Sex: Female
  Weight: 80 kg

DRUGS (2)
  1. HURRICAINE SPRAY [Suspect]
     Indication: LOCAL ANAESTHESIA
     Dosage: 3 SPRAYS
     Route: 049
     Dates: start: 20110802, end: 20110802
  2. LIDOCAINE [Concomitant]
     Indication: LOCAL ANAESTHESIA
     Dosage: 6ML
     Route: 050
     Dates: start: 20110802, end: 20110802

REACTIONS (1)
  - CYANOSIS CENTRAL [None]
